FAERS Safety Report 6280586-5 (Version None)
Quarter: 2009Q3

REPORT INFORMATION
  Report Type: 
  Country: None (occurrence: None)
  Receive Date: 20090724
  Receipt Date: 20080915
  Transmission Date: 20100115
  Serious: No
  Sender: FDA-Public Use
  Company Number: A0747752A

PATIENT
  Age: 81 Year
  Sex: Male

DRUGS (2)
  1. AVANDIA [Suspect]
     Dosage: 8MG PER DAY
     Route: 048
  2. COUMADIN [Concomitant]

REACTIONS (3)
  - FATIGUE [None]
  - HYPOTENSION [None]
  - PROTEIN URINE [None]
